FAERS Safety Report 5018954-1 (Version None)
Quarter: 2006Q2

REPORT INFORMATION
  Report Type: 
  Country: None (occurrence: None)
  Receive Date: 20060531
  Receipt Date: 20060518
  Transmission Date: 20061013
  Serious: Yes (Hospitalization, Disabling)
  Sender: FDA-Public Use
  Company Number: 422740

PATIENT
  Age: 18 Year
  Sex: Female
  Weight: 63.5 kg

DRUGS (2)
  1. ACCUTANE [Suspect]
     Indication: ACNE
     Dosage: 40 MG ORAL
     Route: 048
     Dates: start: 19991011, end: 20000615
  2. LORTAB [Concomitant]

REACTIONS (80)
  - ABDOMINAL PAIN [None]
  - ABORTION INDUCED [None]
  - ACNE [None]
  - ALCOHOLISM [None]
  - ANAEMIA [None]
  - ANXIETY [None]
  - ARTHRALGIA [None]
  - ARTHROPATHY [None]
  - BACK INJURY [None]
  - BACK PAIN [None]
  - BACTERIA URINE IDENTIFIED [None]
  - BRONCHIAL HYPERACTIVITY [None]
  - CHROMATURIA [None]
  - COLITIS [None]
  - COLITIS ULCERATIVE [None]
  - CONDITION AGGRAVATED [None]
  - CONFUSIONAL STATE [None]
  - CONTUSION [None]
  - COUGH [None]
  - CYSTITIS [None]
  - DIFFICULTY IN WALKING [None]
  - DRUG EXPOSURE BEFORE PREGNANCY [None]
  - ECONOMIC PROBLEM [None]
  - EPISTAXIS [None]
  - FALL [None]
  - FATIGUE [None]
  - FEELING ABNORMAL [None]
  - GASTROINTESTINAL DISORDER [None]
  - GLOMERULONEPHRITIS PROLIFERATIVE [None]
  - HAEMATOCRIT DECREASED [None]
  - HAEMATURIA [None]
  - HAEMOGLOBIN DECREASED [None]
  - HEAD INJURY [None]
  - HEADACHE [None]
  - HYPONATRAEMIA [None]
  - INFLAMMATORY BOWEL DISEASE [None]
  - INJURY [None]
  - INTESTINAL HAEMORRHAGE [None]
  - JAW DISORDER [None]
  - JOINT INJURY [None]
  - JOINT SPRAIN [None]
  - MENTAL STATUS CHANGES [None]
  - MULTI-ORGAN DISORDER [None]
  - MULTIPLE ALLERGIES [None]
  - MUSCLE TWITCHING [None]
  - MUSCULOSKELETAL PAIN [None]
  - NAUSEA [None]
  - OEDEMA PERIPHERAL [None]
  - PAIN [None]
  - PAIN IN EXTREMITY [None]
  - PHARYNGOLARYNGEAL PAIN [None]
  - PNEUMONIA [None]
  - PREGNANCY [None]
  - PROTEINURIA [None]
  - PYREXIA [None]
  - RASH [None]
  - RECTAL HAEMORRHAGE [None]
  - RED BLOOD CELL SEDIMENTATION RATE INCREASED [None]
  - RENAL DISORDER [None]
  - SINUSITIS [None]
  - SOMNOLENCE [None]
  - SPINAL FRACTURE [None]
  - SWELLING [None]
  - SWELLING FACE [None]
  - TENDON DISORDER [None]
  - THERAPY NON-RESPONDER [None]
  - TREATMENT NONCOMPLIANCE [None]
  - TREMOR [None]
  - URINARY CASTS [None]
  - URINARY SEDIMENT PRESENT [None]
  - URINARY TRACT INFECTION [None]
  - URINE ABNORMALITY [None]
  - URINE ANALYSIS ABNORMAL [None]
  - URINE LEUKOCYTE ESTERASE POSITIVE [None]
  - VAGINAL DISCHARGE [None]
  - VAGINAL DISORDER [None]
  - VAGINAL PAIN [None]
  - WHITE BLOOD CELL COUNT INCREASED [None]
  - WHITE BLOOD CELLS URINE POSITIVE [None]
  - WOUND DRAINAGE [None]
